FAERS Safety Report 4286472-4 (Version None)
Quarter: 2004Q1

REPORT INFORMATION
  Report Type: 
  Country: None (occurrence: None)
  Receive Date: 20040205
  Receipt Date: 20040205
  Transmission Date: 20041129
  Serious: Yes (Life-Threatening, Hospitalization)
  Sender: FDA-Public Use
  Company Number: None

PATIENT
  Age: 86 Year
  Sex: Female
  Weight: 70.3075 kg

DRUGS (16)
  1. ZYPREXA [Suspect]
     Indication: DEMENTIA
     Dosage: 2.5 MG PO QHS
     Route: 048
     Dates: start: 20040110, end: 20040121
  2. ZYPREXA [Suspect]
     Indication: HALLUCINATION
     Dosage: 2.5 MG PO QHS
     Route: 048
     Dates: start: 20040110, end: 20040121
  3. ZYPREXA [Suspect]
     Indication: PARANOIA
     Dosage: 2.5 MG PO QHS
     Route: 048
     Dates: start: 20040110, end: 20040121
  4. ZYPREXA [Suspect]
     Indication: PSYCHOTIC DISORDER
     Dosage: 2.5 MG PO QHS
     Route: 048
     Dates: start: 20040110, end: 20040121
  5. LEVAQUIN [Suspect]
     Indication: URINARY TRACT INFECTION
     Dosage: 250 MG PO QD
     Route: 048
     Dates: start: 20040101, end: 20040114
  6. COUMADIN [Concomitant]
  7. FUROSEMIDE [Concomitant]
  8. ISOSORBIDE MONONITRATE [Concomitant]
  9. LISINOPRIL [Concomitant]
  10. METOPROLOL TARTRATE [Concomitant]
  11. PROTONIX [Concomitant]
  12. PREDNISONE [Concomitant]
  13. B12 [Concomitant]
  14. IRON SULFATETHIAMIN COMPOUND TAB [Concomitant]
  15. CALCIUM CARBONATE W/VITD [Concomitant]
  16. KCL TAB [Concomitant]

REACTIONS (5)
  - DEHYDRATION [None]
  - LETHARGY [None]
  - PULMONARY OEDEMA [None]
  - THROMBOCYTOPENIA [None]
  - URINARY TRACT INFECTION [None]
